FAERS Safety Report 11587287 (Version 1)
Quarter: 2015Q4

REPORT INFORMATION
  Report Type: Spontaneous
  Country: FR (occurrence: FR)
  Receive Date: 20151001
  Receipt Date: 20151001
  Transmission Date: 20160304
  Serious: Yes (Hospitalization, Other)
  Sender: FDA-Public Use
  Company Number: FR-PFIZER INC-2015321668

PATIENT
  Age: 39 Year
  Sex: Male
  Weight: 100 kg

DRUGS (1)
  1. EFFEXOR LP [Suspect]
     Active Substance: VENLAFAXINE HYDROCHLORIDE
     Indication: DEPRESSION
     Dosage: 75 MG, DAILY (2 CAPSULES OF 37.5 MG)
     Route: 048
     Dates: start: 20091201, end: 20100322

REACTIONS (3)
  - Dyspnoea [Unknown]
  - Cardiomyopathy [Not Recovered/Not Resolved]
  - Ventricular hypokinesia [Unknown]

NARRATIVE: CASE EVENT DATE: 201003
